FAERS Safety Report 9820067 (Version 1)
Quarter: 2013Q4

REPORT INFORMATION
  Report Type: Spontaneous
  Country: US (occurrence: None)
  Receive Date: 20131223
  Receipt Date: 20131223
  Transmission Date: 20140711
  Serious: Yes (Other)
  Sender: FDA-Public Use
  Company Number: 220997

PATIENT
  Age: 53 Year
  Sex: Male

DRUGS (7)
  1. PICATO [Suspect]
     Indication: ACTINIC KERATOSIS
     Dosage: 1 IN 1 D, DERMAL
     Dates: start: 20130309, end: 20130311
  2. PRILOSEC [Concomitant]
  3. HYDROCHLOROTHIAZIDE (HYDROCHLOROTHIAZIDE) [Concomitant]
  4. POTASSIUM (POTASSIUM) [Concomitant]
  5. GLUCOSAMINE (GLUCOSAMINE) [Concomitant]
  6. FISH OIL (FISH OIL) [Concomitant]
  7. MV (MULTIVITAMIN) [Concomitant]

REACTIONS (5)
  - Nausea [None]
  - Feeling hot [None]
  - Pyrexia [None]
  - Urinary tract infection [None]
  - Inappropriate schedule of drug administration [None]
